FAERS Safety Report 17832299 (Version 2)
Quarter: 2020Q4

REPORT INFORMATION
  Report Type: Spontaneous
  Country: US (occurrence: US)
  Receive Date: 20200527
  Receipt Date: 20201019
  Transmission Date: 20210113
  Serious: Yes (Other)
  Sender: FDA-Public Use
  Company Number: US-ROCHE-2438094

PATIENT
  Age: 76 Year
  Sex: Female
  Weight: 53.12 kg

DRUGS (3)
  1. OCREVUS [Suspect]
     Active Substance: OCRELIZUMAB
     Indication: RELAPSING-REMITTING MULTIPLE SCLEROSIS
     Dosage: NEXT DOSE: 02/OCT/2019?ON 30/SEP/2020, SHE RECEIVED HER MOST RECENT INFUSION.
     Route: 042
     Dates: start: 20190925
  2. BENADRYL [Suspect]
     Active Substance: DIPHENHYDRAMINE HYDROCHLORIDE
     Indication: PRODUCT USED FOR UNKNOWN INDICATION
     Route: 065
     Dates: start: 20190925, end: 20190925
  3. OCREVUS [Suspect]
     Active Substance: OCRELIZUMAB
     Route: 042

REACTIONS (9)
  - Dysstasia [Recovered/Resolved]
  - Drug ineffective [Unknown]
  - Relapsing-remitting multiple sclerosis [Unknown]
  - Stress [Unknown]
  - Multiple sclerosis relapse [Unknown]
  - Muscular weakness [Unknown]
  - Anxiety [Unknown]
  - Feeling abnormal [Recovered/Resolved]
  - Gait disturbance [Unknown]

NARRATIVE: CASE EVENT DATE: 20190925
